FAERS Safety Report 13087654 (Version 4)
Quarter: 2017Q1

REPORT INFORMATION
  Report Type: Spontaneous
  Country: US (occurrence: US)
  Receive Date: 20170105
  Receipt Date: 20170214
  Transmission Date: 20170428
  Serious: No
  Sender: FDA-Public Use
  Company Number: US-BAYER-2017-001901

PATIENT
  Age: 66 Year
  Sex: Male
  Weight: 350.5 kg

DRUGS (6)
  1. MIRALAX [Suspect]
     Active Substance: POLYETHYLENE GLYCOL 3350
     Dosage: UNK
     Route: 048
     Dates: start: 20160222, end: 20170206
  2. QUINAPRIL. [Concomitant]
     Active Substance: QUINAPRIL
  3. MIRALAX [Suspect]
     Active Substance: POLYETHYLENE GLYCOL 3350
     Dosage: UNK
     Route: 048
     Dates: start: 20160101, end: 20160104
  4. COLACE [Concomitant]
     Active Substance: DOCUSATE SODIUM
  5. METOPROLOL. [Concomitant]
     Active Substance: METOPROLOL
  6. COLACE [Concomitant]
     Active Substance: DOCUSATE SODIUM
     Dosage: UNK

REACTIONS (5)
  - Dysgeusia [Recovered/Resolved]
  - Diarrhoea [None]
  - Drug ineffective [Unknown]
  - Product use issue [Unknown]
  - Abdominal pain [Unknown]

NARRATIVE: CASE EVENT DATE: 20161222
